FAERS Safety Report 9495346 (Version 1)
Quarter: 2013Q3

REPORT INFORMATION
  Report Type: Spontaneous
  Country: US (occurrence: US)
  Receive Date: 20130903
  Receipt Date: 20130903
  Transmission Date: 20140515
  Serious: Yes (Death)
  Sender: FDA-Public Use
  Company Number: US-GLAXOSMITHKLINE-A1039910A

PATIENT
  Age: 77 Year
  Sex: Female

DRUGS (9)
  1. VOTRIENT [Suspect]
     Indication: RENAL CANCER
     Dosage: 400MG PER DAY
     Route: 048
     Dates: start: 20130114
  2. NEUPOGEN [Concomitant]
  3. VITAMIN D [Concomitant]
  4. MAGNESIUM [Concomitant]
  5. CALCIUM [Concomitant]
  6. FOLIC ACID [Concomitant]
  7. ZOLOFT [Concomitant]
  8. RAMIPRIL [Concomitant]
  9. ENOXAPARIN [Concomitant]

REACTIONS (1)
  - Death [Fatal]
